FAERS Safety Report 14522681 (Version 1)
Quarter: 2018Q1

REPORT INFORMATION
  Report Type: Report from Study
  Country: BE (occurrence: BE)
  Receive Date: 20180212
  Receipt Date: 20180212
  Transmission Date: 20180509
  Serious: Yes (Other)
  Sender: FDA-Public Use
  Company Number: PHHY2015BE113625

PATIENT
  Sex: Female

DRUGS (1)
  1. SANDOSTATINE LAR [Suspect]
     Active Substance: OCTREOTIDE ACETATE
     Indication: NEUROENDOCRINE TUMOUR
     Dosage: 30 MG, QMO
     Route: 030

REACTIONS (2)
  - Parkinson^s disease [Unknown]
  - Alopecia [Unknown]
